FAERS Safety Report 12631820 (Version 2)
Quarter: 2016Q3

REPORT INFORMATION
  Report Type: Spontaneous
  Country: US (occurrence: US)
  Receive Date: 20160808
  Receipt Date: 20160808
  Transmission Date: 20161109
  Serious: No
  Sender: FDA-Public Use
  Company Number: US-BEH-2016061167

PATIENT
  Sex: Female
  Weight: 81 kg

DRUGS (28)
  1. ZYRTEC [Concomitant]
     Active Substance: CETIRIZINE HYDROCHLORIDE
  2. HYZAAR [Concomitant]
     Active Substance: HYDROCHLOROTHIAZIDE\LOSARTAN POTASSIUM
  3. GRISEOFULVIN. [Concomitant]
     Active Substance: GRISEOFULVIN
  4. DIPHENHYDRAMINE. [Concomitant]
     Active Substance: DIPHENHYDRAMINE
  5. PATADAY [Concomitant]
     Active Substance: OLOPATADINE HYDROCHLORIDE
  6. LIDOCAINE. [Concomitant]
     Active Substance: LIDOCAINE
  7. RESTASIS [Concomitant]
     Active Substance: CYCLOSPORINE
  8. ZOLOFT [Concomitant]
     Active Substance: SERTRALINE HYDROCHLORIDE
  9. NASONEX [Concomitant]
     Active Substance: MOMETASONE FUROATE
  10. EPIPEN [Concomitant]
     Active Substance: EPINEPHRINE
  11. SYNTHROID [Concomitant]
     Active Substance: LEVOTHYROXINE SODIUM
  12. EUFLEXXA [Concomitant]
     Active Substance: HYALURONATE SODIUM
  13. LEVOTHYROXINE. [Concomitant]
     Active Substance: LEVOTHYROXINE
  14. ALLOPURINOL. [Concomitant]
     Active Substance: ALLOPURINOL
  15. VOLTAREN [Concomitant]
     Active Substance: DICLOFENAC SODIUM
  16. SINGULAIR [Concomitant]
     Active Substance: MONTELUKAST SODIUM
  17. LMX [Concomitant]
     Active Substance: LIDOCAINE
  18. ADDERALL [Concomitant]
     Active Substance: AMPHETAMINE ASPARTATE\AMPHETAMINE SULFATE\DEXTROAMPHETAMINE SACCHARATE\DEXTROAMPHETAMINE SULFATE
  19. HIZENTRA [Suspect]
     Active Substance: HUMAN IMMUNOGLOBULIN G
     Indication: HYPOGAMMAGLOBULINAEMIA
     Route: 058
     Dates: start: 20151208
  20. DULERA [Concomitant]
     Active Substance: FORMOTEROL FUMARATE DIHYDRATE\MOMETASONE FUROATE
  21. VAGIFEM [Concomitant]
     Active Substance: ESTRADIOL
  22. SIMVASTATIN. [Concomitant]
     Active Substance: SIMVASTATIN
  23. PANTOPRAZOLE [Concomitant]
     Active Substance: PANTOPRAZOLE SODIUM
  24. RELPAX [Concomitant]
     Active Substance: ELETRIPTAN HYDROBROMIDE
  25. FEXOFENADINE [Concomitant]
     Active Substance: FEXOFENADINE\FEXOFENADINE HYDROCHLORIDE
  26. VITAMIN D [Concomitant]
     Active Substance: CHOLECALCIFEROL
  27. LYRICA [Concomitant]
     Active Substance: PREGABALIN
  28. KETOCONAZOLE. [Concomitant]
     Active Substance: KETOCONAZOLE

REACTIONS (1)
  - Infection [Unknown]
